FAERS Safety Report 12186071 (Version 1)
Quarter: 2016Q1

REPORT INFORMATION
  Report Type: Spontaneous
  Country: US (occurrence: US)
  Receive Date: 20160317
  Receipt Date: 20160317
  Transmission Date: 20160526
  Serious: No
  Sender: FDA-Public Use
  Company Number: US-AUROBINDO-AUR-APL-2015-08730

PATIENT
  Age: 90 Year

DRUGS (1)
  1. GABAPENTIN CAPSULES 400 MG [Suspect]
     Active Substance: GABAPENTIN
     Indication: NEUROPATHY PERIPHERAL
     Dosage: 400 MG, 3 TIMES A DAY
     Route: 065
     Dates: start: 200802, end: 201509

REACTIONS (6)
  - Anxiety [Recovering/Resolving]
  - Renal disorder [Unknown]
  - Restlessness [Recovering/Resolving]
  - Withdrawal syndrome [Recovering/Resolving]
  - Blood pressure increased [Recovering/Resolving]
  - Heart rate abnormal [Recovering/Resolving]
